FAERS Safety Report 15476185 (Version 5)
Quarter: 2018Q4

REPORT INFORMATION
  Report Type: Spontaneous
  Country: US (occurrence: US)
  Receive Date: 20181009
  Receipt Date: 20181220
  Transmission Date: 20190205
  Serious: Yes (Hospitalization, Other)
  Sender: FDA-Public Use
  Company Number: US-AMGEN-USASP2018136975

PATIENT
  Age: 81 Year
  Sex: Female

DRUGS (1)
  1. PROLIA [Suspect]
     Active Substance: DENOSUMAB
     Indication: OSTEOPOROSIS POSTMENOPAUSAL
     Dosage: 60 MG, UNK
     Route: 065
     Dates: start: 20180710, end: 20180710

REACTIONS (5)
  - Blood sodium decreased [Unknown]
  - Bone pain [Not Recovered/Not Resolved]
  - Metabolic encephalopathy [Unknown]
  - Blood glucose increased [Unknown]
  - Cachexia [Unknown]

NARRATIVE: CASE EVENT DATE: 20180826
